FAERS Safety Report 23124587 (Version 1)
Quarter: 2023Q4

REPORT INFORMATION
  Report Type: Spontaneous
  Country: US (occurrence: US)
  Receive Date: 20231030
  Receipt Date: 20231030
  Transmission Date: 20240110
  Serious: No
  Sender: FDA-Public Use
  Company Number: US-OPELLA-2023OHG009453

PATIENT
  Sex: Male

DRUGS (1)
  1. DULCOLAX (BISACODYL) [Suspect]
     Active Substance: BISACODYL
     Indication: Gastrointestinal disorder

REACTIONS (4)
  - Heart rate abnormal [Unknown]
  - Heart rate decreased [Unknown]
  - Fatigue [Unknown]
  - Dizziness [Unknown]
